FAERS Safety Report 7922215-8 (Version None)
Quarter: 2011Q4

REPORT INFORMATION
  Report Type: 
  Country: None (occurrence: None)
  Receive Date: 20111117
  Receipt Date: 20110201
  Transmission Date: 20120403
  Serious: Yes (Hospitalization)
  Sender: FDA-Public Use
  Company Number: US-AMGEN-USASP2010010854

PATIENT
  Sex: Female

DRUGS (3)
  1. IBUPROFEN [Concomitant]
     Indication: PAIN
     Dosage: 800 MG, PRN
  2. ENBREL [Suspect]
     Dosage: 25 MG, 2 TIMES/WK
     Route: 064
     Dates: start: 20040601, end: 20080901
  3. ENBREL [Suspect]
     Dosage: 25 MG, 2 TIMES/WK
     Route: 064
     Dates: start: 20040601, end: 20080901

REACTIONS (1)
  - PYREXIA [None]
